FAERS Safety Report 23616432 (Version 1)
Quarter: 2024Q1

REPORT INFORMATION
  Report Type: Spontaneous
  Country: AU (occurrence: AU)
  Receive Date: 20240311
  Receipt Date: 20240311
  Transmission Date: 20240409
  Serious: Yes (Other)
  Sender: FDA-Public Use
  Company Number: AU-AMGEN-AUSSP2024044664

PATIENT
  Sex: Female

DRUGS (2)
  1. PROLIA [Suspect]
     Active Substance: DENOSUMAB
     Indication: Product used for unknown indication
     Dosage: UNK
     Route: 065
  2. ACTONEL EC [Concomitant]

REACTIONS (12)
  - Lower respiratory tract infection [Unknown]
  - Myalgia [Unknown]
  - Arthralgia [Unknown]
  - Constipation [Unknown]
  - Rash [Unknown]
  - Urinary tract infection [Unknown]
  - Alopecia [Unknown]
  - Dyspnoea [Unknown]
  - Paraesthesia [Unknown]
  - Reaction to preservatives [Unknown]
  - Rebound effect [Unknown]
  - Skin irritation [Unknown]
